FAERS Safety Report 11224396 (Version 2)
Quarter: 2015Q3

REPORT INFORMATION
  Report Type: Report from Study
  Country: SE (occurrence: SE)
  Receive Date: 20150629
  Receipt Date: 20150806
  Transmission Date: 20151125
  Serious: Yes (Other)
  Sender: FDA-Public Use
  Company Number: SE-BIOGENIDEC-2015BI086604

PATIENT
  Age: 29 Year
  Sex: Female

DRUGS (9)
  1. PRIMPERAN [Concomitant]
     Active Substance: METOCLOPRAMIDE HYDROCHLORIDE
     Route: 048
  2. FOLIC ACID. [Concomitant]
     Active Substance: FOLIC ACID
     Route: 048
  3. TYSABRI [Suspect]
     Active Substance: NATALIZUMAB
     Indication: MULTIPLE SCLEROSIS
     Route: 042
     Dates: start: 20081104, end: 20140429
  4. POSTAFEN [Concomitant]
     Active Substance: BUCLIZINE HYDROCHLORIDE
     Route: 048
  5. ONDASTERON [Concomitant]
     Route: 048
  6. TAVEGYL [Concomitant]
     Active Substance: CLEMASTINE FUMARATE
     Route: 048
  7. TYSABRI [Suspect]
     Active Substance: NATALIZUMAB
     Indication: MULTIPLE SCLEROSIS
     Route: 042
     Dates: start: 20141211
  8. VITAMIN B [Concomitant]
     Active Substance: VITAMIN B
  9. SOLU-MEDROL [Concomitant]
     Active Substance: METHYLPREDNISOLONE SODIUM SUCCINATE
     Route: 042

REACTIONS (7)
  - Fatigue [Unknown]
  - Maternal exposure during pregnancy [Recovered/Resolved]
  - Ventricular extrasystoles [Unknown]
  - Pruritus [Unknown]
  - Vomiting in pregnancy [Unknown]
  - Polyhydramnios [Unknown]
  - Pyrexia [Unknown]

NARRATIVE: CASE EVENT DATE: 2014
